FAERS Safety Report 10450061 (Version 2)
Quarter: 2014Q3

REPORT INFORMATION
  Report Type: Spontaneous
  Country: FR (occurrence: FR)
  Receive Date: 20140912
  Receipt Date: 20140912
  Transmission Date: 20150326
  Serious: Yes (Other)
  Sender: FDA-Public Use
  Company Number: FR-ELI_LILLY_AND_COMPANY-FR201406009542

PATIENT
  Age: 5 Year
  Sex: Female
  Weight: 19 kg

DRUGS (2)
  1. UMULINE [Suspect]
     Active Substance: INSULIN HUMAN
     Indication: TYPE 1 DIABETES MELLITUS
     Dosage: 15 DF, BID
     Route: 058
     Dates: start: 20130330, end: 20140530
  2. HUMALOG [Suspect]
     Active Substance: INSULIN LISPRO
     Indication: TYPE 1 DIABETES MELLITUS
     Dosage: 2.5 DF, QD
     Route: 058
     Dates: start: 20130330, end: 20130530

REACTIONS (7)
  - Injection site erythema [Unknown]
  - Injection site reaction [Recovered/Resolved]
  - Blood glucose fluctuation [Recovered/Resolved]
  - Abdominal pain [Unknown]
  - Headache [Unknown]
  - Paraesthesia [Unknown]
  - Hyperglycaemia [Unknown]

NARRATIVE: CASE EVENT DATE: 20140502
